FAERS Safety Report 14589611 (Version 1)
Quarter: 2018Q1

REPORT INFORMATION
  Report Type: Spontaneous
  Country: DE (occurrence: DE)
  Receive Date: 20180302
  Receipt Date: 20180302
  Transmission Date: 20180509
  Serious: Yes (Death, Hospitalization, Other)
  Sender: FDA-Public Use
  Company Number: DE-ASTRAZENECA-2018SE25370

PATIENT
  Age: 55 Year
  Sex: Male

DRUGS (14)
  1. TAVOR (LORAZEPAM) [Suspect]
     Active Substance: LORAZEPAM
     Indication: ANXIETY
     Dosage: 6.0MG UNKNOWN
     Route: 048
  2. ABILIFY [Suspect]
     Active Substance: ARIPIPRAZOLE
     Indication: SCHIZOAFFECTIVE DISORDER
     Dosage: 15.0MG UNKNOWN
     Route: 048
     Dates: start: 20050601
  3. MOVICOL [Concomitant]
     Active Substance: POLYETHYLENE GLYCOL 3350\POTASSIUM CHLORIDE\SODIUM BICARBONATE\SODIUM CHLORIDE
     Indication: PRODUCT USED FOR UNKNOWN INDICATION
     Dosage: UNK
     Route: 065
  4. SIMETHICONE (DIMETHICONE) [Concomitant]
     Active Substance: DIMETHICONE
     Indication: PRODUCT USED FOR UNKNOWN INDICATION
     Dosage: UNK
     Route: 065
  5. SEROQUEL [Suspect]
     Active Substance: QUETIAPINE FUMARATE
     Indication: CATATONIA
     Dosage: QUETIAPINE200.0MG UNKNOWN
     Route: 048
     Dates: end: 20090902
  6. ESCITALOPRAM OXALATE. [Suspect]
     Active Substance: ESCITALOPRAM OXALATE
     Indication: SCHIZOAFFECTIVE DISORDER
     Dosage: 10.0MG UNKNOWN
     Route: 048
     Dates: start: 20050101
  7. LEXAPRO [Suspect]
     Active Substance: ESCITALOPRAM OXALATE
     Indication: APATHY
     Route: 048
     Dates: start: 20050101
  8. EFEROX [Concomitant]
     Active Substance: LEVOTHYROXINE SODIUM
     Indication: PRODUCT USED FOR UNKNOWN INDICATION
     Dosage: UNK
     Route: 065
  9. LEXAPRO [Suspect]
     Active Substance: ESCITALOPRAM OXALATE
     Indication: SCHIZOAFFECTIVE DISORDER
     Route: 048
     Dates: start: 20050101
  10. TAVOR (LORAZEPAM) [Suspect]
     Active Substance: LORAZEPAM
     Indication: ANXIETY
     Dosage: 2.0MG UNKNOWN
     Route: 048
  11. TAVOR (LORAZEPAM) [Suspect]
     Active Substance: LORAZEPAM
     Indication: CATATONIA
     Dosage: 2.0MG UNKNOWN
     Route: 048
  12. TAVOR (LORAZEPAM) [Suspect]
     Active Substance: LORAZEPAM
     Indication: CATATONIA
     Dosage: 6.0MG UNKNOWN
     Route: 048
  13. ABILIFY [Suspect]
     Active Substance: ARIPIPRAZOLE
     Indication: SCHIZOAFFECTIVE DISORDER
     Dosage: 20.0MG UNKNOWN
     Route: 048
  14. SEROQUEL [Suspect]
     Active Substance: QUETIAPINE FUMARATE
     Indication: CATATONIA
     Dosage: 200.0MG UNKNOWN
     Route: 048
     Dates: end: 20090902

REACTIONS (4)
  - Schizoaffective disorder [Fatal]
  - Hyperhidrosis [Fatal]
  - Cardio-respiratory arrest [Fatal]
  - Restlessness [Fatal]

NARRATIVE: CASE EVENT DATE: 20090209
